FAERS Safety Report 21714427 (Version 2)
Quarter: 2022Q4

REPORT INFORMATION
  Report Type: Report from Study
  Country: US (occurrence: US)
  Receive Date: 20221212
  Receipt Date: 20221218
  Transmission Date: 20230112
  Serious: No
  Sender: FDA-Public Use
  Company Number: US-002147023-NVSC2022US286678

PATIENT
  Sex: Female

DRUGS (2)
  1. ENTRESTO [Suspect]
     Active Substance: SACUBITRIL\VALSARTAN
     Indication: Product used for unknown indication
     Dosage: 4951 MG, BID (49-51MG)
     Route: 048
     Dates: start: 20201013
  2. ENTRESTO [Suspect]
     Active Substance: SACUBITRIL\VALSARTAN
     Dosage: UNK (1/2 TAB IN MORNING, AND 1 TABLET IN EVENING)
     Route: 065

REACTIONS (3)
  - Blood pressure systolic decreased [Unknown]
  - Dizziness [Unknown]
  - Wrong technique in product usage process [Unknown]
